FAERS Safety Report 4318867-4 (Version None)
Quarter: 2004Q1

REPORT INFORMATION
  Report Type: 
  Country: None (occurrence: None)
  Receive Date: 20040315
  Receipt Date: 20040305
  Transmission Date: 20041129
  Serious: Yes (Hospitalization)
  Sender: FDA-Public Use
  Company Number: HQWYE663309MAR04

PATIENT
  Age: 51 Year
  Sex: Female

DRUGS (1)
  1. ALESSE [Suspect]
     Indication: UTERINE LEIOMYOMA
     Dosage: 1 TABLWET DAILY, ORAL
     Route: 048
     Dates: start: 19990501, end: 19990501

REACTIONS (2)
  - BLINDNESS UNILATERAL [None]
  - CEREBROVASCULAR ACCIDENT [None]
